FAERS Safety Report 12759673 (Version 2)
Quarter: 2016Q3

REPORT INFORMATION
  Report Type: Spontaneous
  Country: US (occurrence: US)
  Receive Date: 20160919
  Receipt Date: 20160923
  Transmission Date: 20161109
  Serious: Yes (Hospitalization, Other)
  Sender: FDA-Public Use
  Company Number: US-PFIZER INC-1678593

PATIENT
  Age: 22 Month
  Sex: Male

DRUGS (24)
  1. DEXMEDETOMIDINE HYDROCHLORIDE. [Interacting]
     Active Substance: DEXMEDETOMIDINE HYDROCHLORIDE
     Dosage: UNK
  2. MIDAZOLAM [Interacting]
     Active Substance: MIDAZOLAM\MIDAZOLAM HYDROCHLORIDE
     Indication: SEDATION
     Dosage: UNK
  3. MORPHINE SULFATE. [Interacting]
     Active Substance: MORPHINE SULFATE
     Indication: EXTUBATION
     Dosage: 0.12 MG/KG/H
  4. SPIRONOLACTONE AND HYDROCHLOROTHIAZIDE [Interacting]
     Active Substance: HYDROCHLOROTHIAZIDE\SPIRONOLACTONE
     Indication: PRODUCT USED FOR UNKNOWN INDICATION
     Dosage: UNK
  5. POLYETHYLENE GLYCOL [Concomitant]
     Active Substance: POLYETHYLENE GLYCOLS
  6. POLYETHYLENE GLYCOL [Interacting]
     Active Substance: POLYETHYLENE GLYCOLS
     Indication: PRODUCT USED FOR UNKNOWN INDICATION
     Dosage: UNK
  7. DEXMEDETOMIDINE HYDROCHLORIDE. [Suspect]
     Active Substance: DEXMEDETOMIDINE HYDROCHLORIDE
     Indication: EXTUBATION
     Dosage: 0.3-0.7 MCG/KG/H
     Route: 041
  8. VANCOMYCIN HCL [Interacting]
     Active Substance: VANCOMYCIN HYDROCHLORIDE
     Indication: PRODUCT USED FOR UNKNOWN INDICATION
     Dosage: UNK
  9. VECURONIUM BROMIDE. [Interacting]
     Active Substance: VECURONIUM BROMIDE
     Indication: PRODUCT USED FOR UNKNOWN INDICATION
     Dosage: UNK
  10. ALBUTEROL /00139501/ [Interacting]
     Active Substance: ALBUTEROL
     Dosage: UNK
  11. GLYCERIN /00200601/ [Interacting]
     Active Substance: GLYCERIN
     Indication: PRODUCT USED FOR UNKNOWN INDICATION
     Dosage: UNK
  12. DEXMEDETOMIDINE HYDROCHLORIDE. [Interacting]
     Active Substance: DEXMEDETOMIDINE HYDROCHLORIDE
     Dosage: 1 ?G/KG
     Route: 041
  13. METHYLPREDNISOLONE. [Interacting]
     Active Substance: METHYLPREDNISOLONE
     Indication: PRODUCT USED FOR UNKNOWN INDICATION
     Dosage: UNK
  14. MORPHINE SULFATE. [Interacting]
     Active Substance: MORPHINE SULFATE
     Indication: SEDATION
     Dosage: UNK
  15. FENTANYL CITRATE. [Interacting]
     Active Substance: FENTANYL CITRATE
     Indication: PRODUCT USED FOR UNKNOWN INDICATION
     Dosage: UNK
  16. CEFTRIAXONE SODIUM. [Interacting]
     Active Substance: CEFTRIAXONE SODIUM
     Indication: PRODUCT USED FOR UNKNOWN INDICATION
     Dosage: UNK
  17. ROCURONIUM BROMIDE. [Interacting]
     Active Substance: ROCURONIUM BROMIDE
     Indication: PRODUCT USED FOR UNKNOWN INDICATION
     Dosage: UNK
  18. ACETAMINOPHEN. [Interacting]
     Active Substance: ACETAMINOPHEN
     Indication: PRODUCT USED FOR UNKNOWN INDICATION
     Dosage: UNK
  19. LANSOPRAZOLE. [Interacting]
     Active Substance: LANSOPRAZOLE
     Indication: PRODUCT USED FOR UNKNOWN INDICATION
     Dosage: UNK
  20. ALBUTEROL /00139501/ [Interacting]
     Active Substance: ALBUTEROL
     Indication: ASTHMA
     Dosage: NOT REPORTED
  21. IPRATROPIUM [Interacting]
     Active Substance: IPRATROPIUM
     Indication: PRODUCT USED FOR UNKNOWN INDICATION
     Dosage: UNK
  22. BUDESONIDE. [Interacting]
     Active Substance: BUDESONIDE
     Indication: PRODUCT USED FOR UNKNOWN INDICATION
     Dosage: UNK
  23. DOCUSATE SODIUM. [Interacting]
     Active Substance: DOCUSATE SODIUM
     Indication: PRODUCT USED FOR UNKNOWN INDICATION
     Dosage: UNK
  24. FUROSEMIDE. [Interacting]
     Active Substance: FUROSEMIDE
     Indication: PRODUCT USED FOR UNKNOWN INDICATION
     Dosage: UNK

REACTIONS (8)
  - Drug interaction [Unknown]
  - Sinus bradycardia [Unknown]
  - Hypocalcaemia [Unknown]
  - Drug administered to patient of inappropriate age [Unknown]
  - Long QT syndrome [Unknown]
  - Electrocardiogram QT prolonged [Unknown]
  - Electrocardiogram repolarisation abnormality [Unknown]
  - Respiratory acidosis [Unknown]
